FAERS Safety Report 15154845 (Version 3)
Quarter: 2018Q3

REPORT INFORMATION
  Report Type: Report from Study
  Country: TW (occurrence: TW)
  Receive Date: 20180717
  Receipt Date: 20180731
  Transmission Date: 20181010
  Serious: Yes (Hospitalization)
  Sender: FDA-Public Use
  Company Number: TW-ELI_LILLY_AND_COMPANY-TW201807005897

PATIENT
  Age: 39 Year
  Sex: Male
  Weight: 65 kg

DRUGS (6)
  1. FOLINA                             /00024201/ [Concomitant]
     Active Substance: FOLIC ACID
     Indication: NASOPHARYNGEAL CANCER
     Dosage: 490 MG, 2/M
     Route: 065
  2. JURNISTA [Concomitant]
     Active Substance: HYDROMORPHONE HYDROCHLORIDE
     Indication: PRODUCT USED FOR UNKNOWN INDICATION
     Dosage: 8 MG, DAILY
     Route: 048
  3. CETY [Concomitant]
     Indication: PRODUCT USED FOR UNKNOWN INDICATION
     Dosage: 10 MG, DAILY
     Route: 048
  4. ULTRACET [Concomitant]
     Active Substance: ACETAMINOPHEN\TRAMADOL HYDROCHLORIDE
     Indication: PRODUCT USED FOR UNKNOWN INDICATION
     Dosage: UNK, EVERY 6 HRS
     Route: 048
  5. CETUXIMAB. [Suspect]
     Active Substance: CETUXIMAB
     Indication: NASOPHARYNGEAL CANCER
     Dosage: 250 MG/M2, WEEKLY (1/W)
     Route: 041
     Dates: start: 20180608
  6. 5 FU [Concomitant]
     Active Substance: FLUOROURACIL
     Indication: NASOPHARYNGEAL CANCER
     Dosage: 4900 MG, 2/M
     Route: 041

REACTIONS (1)
  - White blood cell count decreased [Recovered/Resolved]

NARRATIVE: CASE EVENT DATE: 20180710
